FAERS Safety Report 5440666-0 (Version None)
Quarter: 2007Q3

REPORT INFORMATION
  Report Type: 
  Country: None (occurrence: None)
  Receive Date: 20070831
  Receipt Date: 20070814
  Transmission Date: 20080115
  Serious: No
  Sender: FDA-Public Use
  Company Number: US-BOEHRINGER INGELHEIM PHARMACEUTICALS, INC.-2007-BP-19247BP

PATIENT
  Sex: Male

DRUGS (3)
  1. COMBIVENT [Suspect]
     Indication: PNEUMONIA PRIMARY ATYPICAL
     Route: 055
     Dates: start: 20070806, end: 20070809
  2. COMBIVENT [Suspect]
     Indication: DYSPNOEA
  3. COMBIVENT [Suspect]
     Indication: COUGH

REACTIONS (1)
  - HEADACHE [None]
